FAERS Safety Report 16685587 (Version 2)
Quarter: 2019Q4

REPORT INFORMATION
  Report Type: Spontaneous
  Country: US (occurrence: US)
  Receive Date: 20190809
  Receipt Date: 20191016
  Transmission Date: 20200122
  Serious: Yes (Other)
  Sender: FDA-Public Use
  Company Number: US-SA-2019SA208935

PATIENT
  Age: 52 Year
  Sex: Female
  Weight: 93 kg

DRUGS (12)
  1. TAXOTERE [Suspect]
     Active Substance: DOCETAXEL
     Indication: BREAST CANCER FEMALE
     Dosage: 210 MG, Q3W
     Route: 042
     Dates: start: 20070910, end: 20070910
  2. TAXOTERE [Suspect]
     Active Substance: DOCETAXEL
     Dosage: 210 MG, Q3W
     Route: 042
     Dates: start: 20071112, end: 20071112
  3. 5-FLUOROURACIL [FLUOROURACIL] [Concomitant]
     Active Substance: FLUOROURACIL
     Indication: BREAST CANCER FEMALE
  4. DIVALPROEX SODIUM. [Concomitant]
     Active Substance: DIVALPROEX SODIUM
  5. DEXAMETHASONE. [Concomitant]
     Active Substance: DEXAMETHASONE
  6. NEOSAR [Concomitant]
     Active Substance: CYCLOPHOSPHAMIDE
     Indication: BREAST CANCER FEMALE
  7. ELLENCE [Concomitant]
     Active Substance: EPIRUBICIN HYDROCHLORIDE
     Indication: BREAST CANCER FEMALE
  8. CEFAZOLIN [Concomitant]
     Active Substance: CEFAZOLIN
  9. ALTEPLASE. [Concomitant]
     Active Substance: ALTEPLASE
  10. ONDANSETRON [Concomitant]
     Active Substance: ONDANSETRON
  11. TYLENOL [Concomitant]
     Active Substance: ACETAMINOPHEN
     Dosage: UNK
     Dates: start: 2000
  12. ATIVAN [Concomitant]
     Active Substance: LORAZEPAM

REACTIONS (1)
  - Alopecia [Not Recovered/Not Resolved]

NARRATIVE: CASE EVENT DATE: 200711
